FAERS Safety Report 23277655 (Version 2)
Quarter: 2023Q4

REPORT INFORMATION
  Report Type: Spontaneous
  Country: JP (occurrence: JP)
  Receive Date: 20231208
  Receipt Date: 20231222
  Transmission Date: 20240109
  Serious: Yes (Other)
  Sender: FDA-Public Use
  Company Number: JP-SUN PHARMACEUTICAL INDUSTRIES LTD-2023RR-421516

PATIENT
  Age: 58 Year
  Sex: Female

DRUGS (8)
  1. OXALIPLATIN [Suspect]
     Active Substance: OXALIPLATIN
     Indication: Rectal cancer stage IV
     Dosage: 130 MILLIGRAM/SQ. METER, ON DAY 1 AND EVERY 3 WEEKS
     Route: 042
     Dates: start: 202109
  2. OXALIPLATIN [Suspect]
     Active Substance: OXALIPLATIN
     Dosage: 100 MILLIGRAM/SQ. METER
     Route: 065
  3. CAPECITABINE [Suspect]
     Active Substance: CAPECITABINE
     Indication: Rectal cancer stage IV
     Dosage: 1000 MILLIGRAM/SQ. METER, BID
     Route: 048
     Dates: start: 202109
  4. PALONOSETRON [Concomitant]
     Active Substance: PALONOSETRON
     Indication: Rectal cancer stage IV
     Dosage: 0.75 MILLIGRAM
     Route: 065
  5. DEXAMETHASONE [Concomitant]
     Active Substance: DEXAMETHASONE
     Indication: Rectal cancer stage IV
     Dosage: 6.6 MILLIGRAM, ON DAY 1
     Route: 042
  6. DEXAMETHASONE [Concomitant]
     Active Substance: DEXAMETHASONE
     Dosage: 4 MILLIGRAM. ON DAYS 2 AND 3
     Route: 065
  7. APREPITANT [Concomitant]
     Active Substance: APREPITANT
     Indication: Rectal cancer stage IV
     Dosage: 125 MILLIGRAM, ON DAY 1
     Route: 048
  8. APREPITANT [Concomitant]
     Active Substance: APREPITANT
     Dosage: 80 MILLIGRAM, ON DAYS 2 AND 3
     Route: 048

REACTIONS (2)
  - Dysaesthesia pharynx [Recovered/Resolved]
  - Dyspnoea [Recovered/Resolved]
